FAERS Safety Report 19461881 (Version 1)
Quarter: 2021Q2

REPORT INFORMATION
  Report Type: Spontaneous
  Country: CN (occurrence: CN)
  Receive Date: 20210625
  Receipt Date: 20210625
  Transmission Date: 20210717
  Serious: Yes (Other)
  Sender: FDA-Public Use
  Company Number: CN-ELI_LILLY_AND_COMPANY-CN202106006332

PATIENT
  Age: 43 Year
  Sex: Male

DRUGS (6)
  1. SODIUM CHLORIDE. [Concomitant]
     Active Substance: SODIUM CHLORIDE
     Indication: NASOPHARYNGEAL CANCER
     Dosage: 500 ML, OTHER (ONCE A DAY )
     Route: 041
     Dates: start: 20210513, end: 20210514
  2. SODIUM CHLORIDE. [Concomitant]
     Active Substance: SODIUM CHLORIDE
     Dosage: 100 ML, OTHER (ONCE A DAY)
     Route: 041
     Dates: start: 20210522, end: 20210522
  3. CISPLATIN. [Suspect]
     Active Substance: CISPLATIN
     Indication: NASOPHARYNGEAL CANCER
     Dosage: 70 MG, DAILY
     Route: 041
     Dates: start: 20210513, end: 20210514
  4. GEMZAR [Suspect]
     Active Substance: GEMCITABINE HYDROCHLORIDE
     Dosage: 1800 MG, CYCLICAL
     Route: 041
     Dates: start: 20210522
  5. GEMZAR [Suspect]
     Active Substance: GEMCITABINE HYDROCHLORIDE
     Indication: NASOPHARYNGEAL CANCER
     Dosage: 1800 MG, CYCLICAL
     Route: 041
     Dates: start: 20210513, end: 20210513
  6. SODIUM CHLORIDE. [Concomitant]
     Active Substance: SODIUM CHLORIDE
     Dosage: 100 ML, OTHER (ONCE A DAY)
     Route: 041
     Dates: start: 20210513, end: 20210513

REACTIONS (5)
  - Neutrophil count increased [Unknown]
  - Neutrophil count decreased [Recovering/Resolving]
  - White blood cell count increased [Unknown]
  - White blood cell count decreased [Recovering/Resolving]
  - Off label use [Unknown]

NARRATIVE: CASE EVENT DATE: 20210513
